FAERS Safety Report 6107185-X (Version None)
Quarter: 2009Q1

REPORT INFORMATION
  Report Type: 
  Country: None (occurrence: None)
  Receive Date: 20090305
  Receipt Date: 20090305
  Transmission Date: 20090719
  Serious: Yes (Life-Threatening, Other)
  Sender: FDA-Public Use
  Company Number: None

PATIENT
  Age: 59 Year
  Sex: Female
  Weight: 70.3075 kg

DRUGS (2)
  1. FENTANYL-100 [Suspect]
     Indication: BONE NEOPLASM MALIGNANT
     Dosage: 100 MCG EVERY 72 HRS
     Dates: start: 20070101, end: 20090301
  2. FENTANYL-100 [Suspect]
     Indication: CANCER PAIN
     Dosage: 50 MCG EVERY 72 HRS
     Dates: start: 20070101, end: 20090301

REACTIONS (13)
  - ANOREXIA [None]
  - ASTHENIA [None]
  - CONSTIPATION [None]
  - DISORIENTATION [None]
  - DIZZINESS [None]
  - DRY MOUTH [None]
  - DYSKINESIA [None]
  - DYSPNOEA [None]
  - DYSURIA [None]
  - FATIGUE [None]
  - NAUSEA [None]
  - SOMNOLENCE [None]
  - TREMOR [None]
